FAERS Safety Report 19663430 (Version 1)
Quarter: 2021Q3

REPORT INFORMATION
  Report Type: Spontaneous
  Country: US (occurrence: US)
  Receive Date: 20210805
  Receipt Date: 20210805
  Transmission Date: 20211014
  Serious: Yes (Other)
  Sender: FDA-Public Use
  Company Number: US-PURDUE-USA-2020-0273681

PATIENT
  Sex: Male

DRUGS (7)
  1. OXYCONTIN [Suspect]
     Active Substance: OXYCODONE HYDROCHLORIDE
     Indication: SURGERY
     Dosage: UNKNOWN
     Route: 048
     Dates: start: 1996
  2. HYSINGLA ER [Suspect]
     Active Substance: HYDROCODONE BITARTRATE
     Indication: SURGERY
     Dosage: UNKNOWN
     Route: 048
     Dates: start: 1996
  3. DILAUDID [Suspect]
     Active Substance: HYDROMORPHONE HYDROCHLORIDE
     Indication: SURGERY
     Dosage: UNKNOWN
     Route: 048
     Dates: start: 1996
  4. TRAMADOL CR TABLETS (RHODES 21?745) [Suspect]
     Active Substance: TRAMADOL
     Indication: SURGERY
     Dosage: UNKNOWN
     Route: 048
     Dates: start: 1996
  5. HYDROCODONE BITARTRATE AND ACETAMINOPHEN [Suspect]
     Active Substance: ACETAMINOPHEN\HYDROCODONE BITARTRATE
     Indication: SURGERY
     Dosage: UNKNOWN
     Route: 048
     Dates: start: 1996
  6. HYDROMORPHONE TABLETS [Suspect]
     Active Substance: HYDROMORPHONE
     Indication: SURGERY
     Dosage: UNKNOWN
     Route: 048
     Dates: start: 1996
  7. OXYCODONE/ ACETAMINOPHEN TABLETS [Suspect]
     Active Substance: ACETAMINOPHEN\OXYCODONE HYDROCHLORIDE
     Indication: SURGERY
     Dosage: UNKNOWN
     Route: 048
     Dates: start: 1996

REACTIONS (12)
  - Major depression [Unknown]
  - Aggression [Unknown]
  - Disturbance in attention [Unknown]
  - Muscle twitching [Unknown]
  - Drug dependence [Unknown]
  - Sexual dysfunction [Unknown]
  - Myalgia [Unknown]
  - Impatience [Unknown]
  - Irritability [Unknown]
  - Personality change [Unknown]
  - Memory impairment [Unknown]
  - Hypertension [Unknown]
